FAERS Safety Report 21167387 (Version 2)
Quarter: 2022Q3

REPORT INFORMATION
  Report Type: Report from Study
  Country: US (occurrence: US)
  Receive Date: 20220803
  Receipt Date: 20220815
  Transmission Date: 20221027
  Serious: No
  Sender: FDA-Public Use
  Company Number: US-BRISTOL-MYERS SQUIBB COMPANY-2022-076744

PATIENT
  Age: 54 Year
  Sex: Female
  Weight: 67 kg

DRUGS (5)
  1. REVLIMID [Suspect]
     Active Substance: LENALIDOMIDE
     Indication: Plasma cell myeloma
     Route: 065
  2. REVLIMID [Suspect]
     Active Substance: LENALIDOMIDE
     Dosage: DAILY FOR 14 DAYS, THEN 7 DAYS OFF
     Route: 048
     Dates: start: 202207
  3. ACYCLOVIR [Concomitant]
     Active Substance: ACYCLOVIR
     Indication: Product used for unknown indication
     Route: 065
  4. BUTALBITAL-ACETAMINOPHEN-CAFFE [Concomitant]
     Indication: Product used for unknown indication
     Route: 065
  5. SIMVASTATIN [Concomitant]
     Active Substance: SIMVASTATIN
     Indication: Product used for unknown indication
     Route: 065

REACTIONS (6)
  - Fatigue [Unknown]
  - Vaginal haemorrhage [Recovered/Resolved]
  - Bone pain [Recovered/Resolved]
  - Neck pain [Recovered/Resolved]
  - Musculoskeletal chest pain [Unknown]
  - Nausea [Unknown]
